FAERS Safety Report 10484917 (Version 3)
Quarter: 2015Q2

REPORT INFORMATION
  Report Type: Spontaneous
  Country: US (occurrence: US)
  Receive Date: 20140930
  Receipt Date: 20150612
  Transmission Date: 20150821
  Serious: Yes (Hospitalization)
  Sender: FDA-Public Use
  Company Number: US-BAYER-2014-144923

PATIENT
  Age: 29 Year
  Sex: Female
  Weight: 104 kg

DRUGS (1)
  1. MIRENA [Suspect]
     Active Substance: LEVONORGESTREL
     Indication: CONTRACEPTION
     Dosage: 20 MCG/24HR, CONT
     Route: 015
     Dates: start: 20041207, end: 20100630

REACTIONS (7)
  - Device difficult to use [None]
  - Abdominal pain lower [Recovered/Resolved]
  - Injury [Recovered/Resolved]
  - Device misuse [None]
  - Device dislocation [Recovered/Resolved]
  - Device issue [None]
  - Device expulsion [None]

NARRATIVE: CASE EVENT DATE: 2007
